FAERS Safety Report 6910186-2 (Version None)
Quarter: 2010Q3

REPORT INFORMATION
  Report Type: 
  Country: None (occurrence: None)
  Receive Date: 20100806
  Receipt Date: 20100726
  Transmission Date: 20110219
  Serious: No
  Sender: FDA-Public Use
  Company Number: JP-NOVOPROD-311604

PATIENT
  Age: 80 Year
  Sex: Female
  Weight: 49 kg

DRUGS (5)
  1. VICTOZA HIKACHU INJECTION [Suspect]
     Indication: TYPE 2 DIABETES MELLITUS
     Dosage: 0.3 MG, QD
     Route: 058
     Dates: start: 20100619, end: 20100625
  2. VICTOZA HIKACHU INJECTION [Suspect]
     Dosage: 0.6 MG, QD
     Route: 058
     Dates: start: 20100626
  3. VICTOZA HIKACHU INJECTION [Suspect]
     Dosage: 0.3 MG, QD
     Route: 058
     Dates: start: 20100706
  4. LIPITOR [Concomitant]
     Dosage: 10MG
  5. DIOVAN [Concomitant]
     Dosage: 100MG

REACTIONS (5)
  - DECREASED APPETITE [None]
  - MALAISE [None]
  - NAUSEA [None]
  - VOMITING [None]
  - WEIGHT DECREASED [None]
